FAERS Safety Report 16352225 (Version 1)
Quarter: 2019Q2

REPORT INFORMATION
  Report Type: Spontaneous
  Country: US (occurrence: US)
  Receive Date: 20190418
  Receipt Date: 20190418
  Transmission Date: 20190711
  Serious: No
  Sender: FDA-Public Use
  Company Number: None

PATIENT
  Age: 70 Year
  Sex: Male

DRUGS (4)
  1. POTASSIUM [Concomitant]
     Active Substance: POTASSIUM
  2. ZYTIGA [Suspect]
     Active Substance: ABIRATERONE ACETATE
     Route: 048
     Dates: start: 201901
  3. NIFEDIPINE. [Concomitant]
     Active Substance: NIFEDIPINE
  4. RANITIDINE. [Concomitant]
     Active Substance: RANITIDINE

REACTIONS (2)
  - Neck pain [None]
  - Muscle spasms [None]

NARRATIVE: CASE EVENT DATE: 20190418
